FAERS Safety Report 23513706 (Version 5)
Quarter: 2024Q1

REPORT INFORMATION
  Report Type: Spontaneous
  Country: US (occurrence: US)
  Receive Date: 20240212
  Receipt Date: 20240226
  Transmission Date: 20240410
  Serious: Yes (Hospitalization, Disabling, Other)
  Sender: FDA-Public Use
  Company Number: US-SA-SAC20240205001409

PATIENT
  Age: 20 Year
  Sex: Female
  Weight: 83.92 kg

DRUGS (3)
  1. DUPIXENT [Suspect]
     Active Substance: DUPILUMAB
     Indication: Hidradenitis
     Dosage: 300 MG, QOW
     Route: 058
     Dates: start: 201902
  2. DUPIXENT [Suspect]
     Active Substance: DUPILUMAB
     Indication: Dermatitis atopic
  3. COSENTYX [Concomitant]
     Active Substance: SECUKINUMAB

REACTIONS (6)
  - Immobile [Unknown]
  - Hospitalisation [Unknown]
  - Pain [Unknown]
  - Hidradenitis [Unknown]
  - Condition aggravated [Unknown]
  - Product use in unapproved indication [Unknown]

NARRATIVE: CASE EVENT DATE: 20190201
